FAERS Safety Report 10513604 (Version 5)
Quarter: 2016Q1

REPORT INFORMATION
  Report Type: Other
  Country: US (occurrence: US)
  Receive Date: 20141013
  Receipt Date: 20160113
  Transmission Date: 20160525
  Serious: Yes (Other)
  Sender: FDA-Public Use
  Company Number: US-ACORDA-ACO_104756_2014

PATIENT
  Age: 60 Year
  Sex: Female

DRUGS (1)
  1. AMPYRA [Suspect]
     Active Substance: DALFAMPRIDINE
     Indication: PRODUCT USED FOR UNKNOWN INDICATION
     Dosage: 10 MG, Q 12 HRS
     Route: 065
     Dates: start: 20120629

REACTIONS (11)
  - Adrenal insufficiency [Unknown]
  - Osteopenia [Unknown]
  - Fall [Unknown]
  - Muscle spasticity [Not Recovered/Not Resolved]
  - Movement disorder [Unknown]
  - Influenza [Unknown]
  - Drug dose omission [Unknown]
  - Multiple sclerosis relapse [Unknown]
  - Pain [Not Recovered/Not Resolved]
  - Hypoaesthesia [Unknown]
  - Fatigue [Unknown]

NARRATIVE: CASE EVENT DATE: 20140714
